FAERS Safety Report 10552313 (Version 1)
Quarter: 2014Q4

REPORT INFORMATION
  Report Type: Spontaneous
  Country: US (occurrence: US)
  Receive Date: 20141029
  Receipt Date: 20141029
  Transmission Date: 20150529
  Serious: Yes (Death)
  Sender: FDA-Public Use
  Company Number: US-BRISTOL-MYERS SQUIBB COMPANY-21521539

PATIENT
  Sex: Female

DRUGS (2)
  1. GLEEVEC [Concomitant]
     Active Substance: IMATINIB MESYLATE
  2. YERVOY [Suspect]
     Active Substance: IPILIMUMAB
     Dosage: RECIEVED 2 DOSES?LAST DOSE ADMN:17DEC2013

REACTIONS (1)
  - Death [Fatal]

NARRATIVE: CASE EVENT DATE: 20140129
